FAERS Safety Report 7265029-7 (Version None)
Quarter: 2011Q1

REPORT INFORMATION
  Report Type: 
  Country: None (occurrence: None)
  Receive Date: 20110131
  Receipt Date: 20110128
  Transmission Date: 20110831
  Serious: Yes (Hospitalization)
  Sender: FDA-Public Use
  Company Number: ES-ABBOTT-11P-144-0701035-00

PATIENT
  Age: 79 Year
  Sex: Male

DRUGS (8)
  1. CLARITHROMYCIN [Interacting]
     Indication: ORGANISING PNEUMONIA
     Route: 065
     Dates: start: 20100924, end: 20101005
  2. ALLOPURINOL [Interacting]
     Indication: HYPERURICAEMIA
     Route: 048
  3. ACALKA [Concomitant]
     Indication: PRODUCT USED FOR UNKNOWN INDICATION
     Route: 048
     Dates: start: 20091101, end: 20101013
  4. MANIDON [Suspect]
     Indication: HYPERTENSION
     Route: 048
     Dates: start: 20000101, end: 20101013
  5. CEFTRIAXONA [Concomitant]
     Indication: ORGANISING PNEUMONIA
     Dates: start: 20090101, end: 20101013
  6. CRESTOR [Interacting]
     Indication: DYSLIPIDAEMIA
     Route: 048
     Dates: start: 20060101, end: 20101013
  7. EUCREAS [Concomitant]
     Indication: TYPE 2 DIABETES MELLITUS
     Dosage: 50/850MG
     Dates: start: 20100924, end: 20101005
  8. COLCHIMAX [Interacting]
     Indication: HYPERURICAEMIA
     Route: 048
     Dates: start: 20000101, end: 20101005

REACTIONS (3)
  - LEFT VENTRICULAR DYSFUNCTION [None]
  - RHABDOMYOLYSIS [None]
  - RENAL FAILURE ACUTE [None]
